FAERS Safety Report 7892335-5 (Version None)
Quarter: 2011Q4

REPORT INFORMATION
  Report Type: 
  Country: None (occurrence: None)
  Receive Date: 20111103
  Receipt Date: 20111103
  Transmission Date: 20120403
  Serious: Yes (Hospitalization)
  Sender: FDA-Public Use
  Company Number: None

PATIENT
  Sex: Female
  Weight: 63.5 kg

DRUGS (2)
  1. CARBOPLATIN [Suspect]
     Dosage: 531 MG
  2. PACLITAXEL [Suspect]
     Dosage: 221 MG

REACTIONS (2)
  - FEBRILE NEUTROPENIA [None]
  - ANAEMIA [None]
